FAERS Safety Report 11360120 (Version 1)
Quarter: 2015Q3

REPORT INFORMATION
  Report Type: Spontaneous
  Country: ES (occurrence: ES)
  Receive Date: 20150810
  Receipt Date: 20150810
  Transmission Date: 20151125
  Serious: Yes (Other)
  Sender: FDA-Public Use
  Company Number: ES-HOSPIRA-2965080

PATIENT
  Age: 53 Year

DRUGS (2)
  1. PACLITAXEL ALBUMIN [Suspect]
     Active Substance: PACLITAXEL
     Indication: PANCREATIC CARCINOMA METASTATIC
     Dosage: ON DAYS 1, 8 AND 15 OF EACH CYCLE, IN CYCLES OF 28 DAYS
     Route: 042
     Dates: start: 201303
  2. GEMCITABINE HYDROCHLORIDE. [Suspect]
     Active Substance: GEMCITABINE HYDROCHLORIDE
     Indication: PANCREATIC CARCINOMA METASTATIC
     Dosage: ON DAYS 1, 8 AND 15 OF EACH CYCLE, IN CYCLES OF 28 DAYS
     Route: 042
     Dates: start: 201303

REACTIONS (5)
  - Constipation [Unknown]
  - Dry skin [Unknown]
  - Asthenia [Unknown]
  - Neuropathy peripheral [Unknown]
  - Arthralgia [Unknown]
